FAERS Safety Report 8965021 (Version 1)
Quarter: 2012Q4

REPORT INFORMATION
  Report Type: 
  Country: US (occurrence: US)
  Receive Date: 20121213
  Receipt Date: 20121213
  Transmission Date: 20130627
  Serious: Yes (Hospitalization)
  Sender: FDA-Public Use
  Company Number: US-JNJFOC-20121202055

PATIENT
  Age: 72 Year
  Sex: Male
  Weight: 110 kg

DRUGS (2)
  1. XARELTO [Suspect]
     Indication: CEREBROVASCULAR ACCIDENT PROPHYLAXIS
     Route: 048
     Dates: start: 20120824, end: 20120912
  2. XARELTO [Suspect]
     Indication: ATRIAL FIBRILLATION
     Route: 048
     Dates: start: 20120824, end: 20120912

REACTIONS (3)
  - Ulcer [Unknown]
  - Haematochezia [Recovered/Resolved]
  - Dyspepsia [Unknown]
